FAERS Safety Report 4862130-X (Version None)
Quarter: 2005Q4

REPORT INFORMATION
  Report Type: 
  Country: None (occurrence: None)
  Receive Date: 20051221
  Receipt Date: 20051209
  Transmission Date: 20060501
  Serious: Yes (Other)
  Sender: FDA-Public Use
  Company Number: CA-BRISTOL-MYERS SQUIBB COMPANY-13217799

PATIENT
  Age: 68 Year
  Sex: Female

DRUGS (17)
  1. TEQUIN [Suspect]
     Route: 048
  2. ASPIRIN [Concomitant]
  3. ARAVA [Concomitant]
  4. CARDIZEM [Concomitant]
  5. FOSAMAX [Concomitant]
  6. GLUCONORM [Concomitant]
  7. K-DUR 10 [Concomitant]
  8. LASIX [Concomitant]
  9. LEUCOVORIN CALCIUM [Concomitant]
  10. METFORMIN HCL [Concomitant]
  11. METHOTREXATE [Concomitant]
  12. OXAZEPAM [Concomitant]
  13. PRAVACHOL [Concomitant]
  14. PREDNISONE TAB [Concomitant]
  15. RANITIDINE [Concomitant]
  16. SYNTHROID [Concomitant]
  17. TAMBOCOR [Concomitant]

REACTIONS (4)
  - ASTHENIA [None]
  - HYPERHIDROSIS [None]
  - HYPOGLYCAEMIA [None]
  - PALPITATIONS [None]
